FAERS Safety Report 10581682 (Version 1)
Quarter: 2014Q4

REPORT INFORMATION
  Report Type: Spontaneous
  Country: US (occurrence: None)
  Receive Date: 20141110
  Receipt Date: 20141110
  Transmission Date: 20150529
  Serious: Yes (Other)
  Sender: FDA-Public Use
  Company Number: 2014-US-014183

PATIENT
  Sex: Female

DRUGS (3)
  1. XYREM [Suspect]
     Active Substance: SODIUM OXYBATE
     Route: 048
     Dates: start: 201402, end: 2014
  2. ZOFRAN (ONDANSETRON) [Concomitant]
  3. IRON (IRON) [Concomitant]
     Active Substance: IRON

REACTIONS (13)
  - Drug interaction [None]
  - Seizure [None]
  - Sleep paralysis [None]
  - Hypoaesthesia [None]
  - Movement disorder [None]
  - Chromaturia [None]
  - Rhabdomyolysis [None]
  - Fall [None]
  - Narcolepsy [None]
  - Pain [None]
  - Peripheral swelling [None]
  - Spinal cord injury [None]
  - Somnambulism [None]

NARRATIVE: CASE EVENT DATE: 2014
